FAERS Safety Report 8170944-6 (Version None)
Quarter: 2012Q1

REPORT INFORMATION
  Report Type: 
  Country: None (occurrence: None)
  Receive Date: 20120113
  Receipt Date: 20100210
  Transmission Date: 20120608
  Serious: No
  Sender: FDA-Public Use
  Company Number: APP201000088

PATIENT
  Sex: Female

DRUGS (1)
  1. PACLITAXEL [Suspect]
     Indication: NEOPLASM MALIGNANT
     Dosage: UNKNOWN, UNK

REACTIONS (2)
  - EXTRAVASATION [None]
  - NO ADVERSE EVENT [None]
